FAERS Safety Report 5118908-0 (Version None)
Quarter: 2006Q3

REPORT INFORMATION
  Report Type: 
  Country: None (occurrence: None)
  Receive Date: 20060927
  Receipt Date: 20060911
  Transmission Date: 20061208
  Serious: Yes (Disabling)
  Sender: FDA-Public Use
  Company Number: 229712

PATIENT
  Age: 37 Year
  Sex: Female

DRUGS (8)
  1. RAPTIVA [Suspect]
     Indication: PSORIASIS
     Dosage: SUBCUTANEOUS
     Route: 058
     Dates: start: 20060712, end: 20060712
  2. ELOCON [Concomitant]
  3. OMEPRAZOLE [Concomitant]
  4. TRAMADOL HCL [Concomitant]
  5. ACETAMINOPHEN W/ CODEINE [Concomitant]
  6. CURATODERM (TACALCITOL) [Concomitant]
  7. METHYLPREDNISOLONE ACETATE [Concomitant]
  8. DICLOFENAC SODIUM [Concomitant]

REACTIONS (3)
  - ARTHRALGIA [None]
  - PLANTAR FASCIITIS [None]
  - PSORIATIC ARTHROPATHY [None]
